FAERS Safety Report 6202481-X (Version None)
Quarter: 2009Q2

REPORT INFORMATION
  Report Type: 
  Country: None (occurrence: None)
  Receive Date: 20090526
  Receipt Date: 20090519
  Transmission Date: 20091009
  Serious: Yes (Death, Life-Threatening)
  Sender: FDA-Public Use
  Company Number: JP-SANOFI-SYNTHELABO-F01200900161

PATIENT
  Sex: Female
  Weight: 50 kg

DRUGS (16)
  1. SOLDEM 3A [Concomitant]
     Dosage: 500 ML
     Route: 042
     Dates: start: 20080915, end: 20080916
  2. FULCALIQ [Concomitant]
     Indication: ENTERAL NUTRITION
     Dosage: 963 ML
     Route: 042
     Dates: start: 20080917, end: 20081002
  3. SIGMART [Concomitant]
     Indication: ACUTE MYOCARDIAL INFARCTION
     Route: 048
     Dates: start: 20080915, end: 20080923
  4. NU-LOTAN [Concomitant]
     Indication: ACUTE MYOCARDIAL INFARCTION
     Dosage: 25 MG
     Route: 048
     Dates: start: 20080915, end: 20080923
  5. MEROPEN [Concomitant]
     Indication: INFECTION PROPHYLAXIS
     Route: 042
     Dates: start: 20080917, end: 20081003
  6. SERENACE [Concomitant]
     Indication: SEDATION
     Dosage: 1.25 MG
     Route: 042
     Dates: start: 20080915, end: 20080916
  7. CEFAMEZIN [Concomitant]
     Indication: INFECTION PROPHYLAXIS
     Route: 042
     Dates: start: 20080915, end: 20080916
  8. HANP [Concomitant]
     Indication: ACUTE MYOCARDIAL INFARCTION
     Dosage: 0.025 MCG/KG/MIN
     Route: 042
     Dates: start: 20080915, end: 20080922
  9. DOBUTAMINE HCL [Concomitant]
     Indication: ACUTE MYOCARDIAL INFARCTION
     Dosage: 2-4 MCG/KG/MIN
     Route: 042
     Dates: start: 20080915, end: 20081003
  10. CATABON [Concomitant]
     Dosage: 5 MCG/KG/MIN
     Route: 042
     Dates: start: 20080915, end: 20080915
  11. CATABON [Concomitant]
     Dosage: 3-8 MCG/KG/MIN
     Route: 042
     Dates: start: 20080915, end: 20081003
  12. HEPARIN [Interacting]
     Indication: ACUTE MYOCARDIAL INFARCTION
     Dosage: 10000 UNIT
     Route: 042
     Dates: start: 20080915, end: 20080916
  13. ASPIRIN [Interacting]
     Indication: ACUTE MYOCARDIAL INFARCTION
     Dosage: 100 MG
     Route: 048
     Dates: start: 20080915, end: 20080923
  14. ASPIRIN [Interacting]
     Route: 048
     Dates: start: 20080924, end: 20081001
  15. CLOPIDOGREL [Suspect]
     Indication: ACUTE MYOCARDIAL INFARCTION
     Dosage: MAINTENANCE DOSE
     Route: 048
     Dates: start: 20080915, end: 20080924
  16. LASIX [Concomitant]
     Indication: ACUTE MYOCARDIAL INFARCTION
     Dosage: 10 MG
     Route: 065
     Dates: start: 20080915, end: 20081003

REACTIONS (3)
  - GASTROINTESTINAL HAEMORRHAGE [None]
  - INTERVENTRICULAR SEPTUM RUPTURE [None]
  - MULTI-ORGAN FAILURE [None]
